FAERS Safety Report 10575905 (Version 1)
Quarter: 2014Q4

REPORT INFORMATION
  Report Type: Spontaneous
  Country: US (occurrence: None)
  Receive Date: 20141110
  Receipt Date: 20141110
  Transmission Date: 20150529
  Serious: Yes (Hospitalization)
  Sender: FDA-Public Use
  Company Number: None

PATIENT
  Age: 79 Year
  Sex: Female
  Weight: 67 kg

DRUGS (2)
  1. ETOPOSIDE (VP-16) [Suspect]
     Active Substance: ETOPOSIDE
  2. CISPLATIN. [Suspect]
     Active Substance: CISPLATIN

REACTIONS (5)
  - Platelet count decreased [None]
  - Oesophagitis [None]
  - Oesophageal pain [None]
  - Neutropenia [None]
  - Dysphagia [None]

NARRATIVE: CASE EVENT DATE: 20141020
